FAERS Safety Report 18874965 (Version 1)
Quarter: 2021Q1

REPORT INFORMATION
  Report Type: Other
  Country: CA (occurrence: CA)
  Receive Date: 20210210
  Receipt Date: 20210210
  Transmission Date: 20210420
  Serious: Yes (Other)
  Sender: FDA-Public Use
  Company Number: CA-GE HEALTHCARE LIFE SCIENCES-2021CSU000674

PATIENT

DRUGS (2)
  1. OMNIPAQUE [Suspect]
     Active Substance: IOHEXOL
     Indication: PRODUCT USED FOR UNKNOWN INDICATION
  2. OMNIPAQUE [Suspect]
     Active Substance: IOHEXOL
     Indication: DIAGNOSTIC PROCEDURE
     Dosage: 100 ML, SINGLE
     Route: 065

REACTIONS (10)
  - Erythema [Unknown]
  - Vital functions abnormal [Unknown]
  - Sneezing [Unknown]
  - Throat irritation [Unknown]
  - Chest discomfort [Unknown]
  - Urticaria [Unknown]
  - Nausea [Unknown]
  - Contrast media reaction [Unknown]
  - Headache [Unknown]
  - Pruritus [Unknown]
